FAERS Safety Report 4544150-8 (Version None)
Quarter: 2005Q1

REPORT INFORMATION
  Report Type: 
  Country: None (occurrence: None)
  Receive Date: 20050104
  Receipt Date: 20050103
  Transmission Date: 20050727
  Serious: Yes (Other)
  Sender: FDA-Public Use
  Company Number: US-GLAXOSMITHKLINE-A0539094A

PATIENT
  Age: 41 Year
  Sex: Male

DRUGS (6)
  1. ADVAIR DISKUS 100/50 [Suspect]
     Indication: ASTHMA
     Dosage: 1PUFF TWICE PER DAY
     Route: 055
     Dates: start: 20030101
  2. EFFEXOR [Concomitant]
  3. TRICOR [Concomitant]
  4. HYDROCHLOROTHIAZIDE [Concomitant]
  5. ATACAND [Concomitant]
  6. MAXAIR [Concomitant]

REACTIONS (1)
  - SIMPLE PARTIAL SEIZURES [None]
